FAERS Safety Report 10188197 (Version 2)
Quarter: 2014Q3

REPORT INFORMATION
  Report Type: Spontaneous
  Country: AT (occurrence: AT)
  Receive Date: 20140522
  Receipt Date: 20140717
  Transmission Date: 20150326
  Serious: Yes (Other)
  Sender: FDA-Public Use
  Company Number: AT-009507513-1405AUT006842

PATIENT
  Age: 37 Year
  Sex: Female
  Weight: 54 kg

DRUGS (1)
  1. IMPLANON [Suspect]
     Active Substance: ETONOGESTREL
     Indication: CONTRACEPTION
     Dosage: UNK
     Route: 059
     Dates: start: 20140115, end: 20140512

REACTIONS (4)
  - Aggression [Unknown]
  - Mental status changes [Unknown]
  - Impatience [Unknown]
  - Haemorrhage [Unknown]

NARRATIVE: CASE EVENT DATE: 2014
